FAERS Safety Report 7024463-0 (Version None)
Quarter: 2010Q3

REPORT INFORMATION
  Report Type: 
  Country: None (occurrence: None)
  Receive Date: 20100929
  Receipt Date: 20100921
  Transmission Date: 20110219
  Serious: Yes (Life-Threatening)
  Sender: FDA-Public Use
  Company Number: 019133

PATIENT
  Sex: Female

DRUGS (3)
  1. KEPPRA [Suspect]
     Indication: INTENTIONAL SELF-INJURY
     Dosage: 40 DF ORAL
     Route: 048
     Dates: start: 20100917, end: 20100917
  2. TEGRETOL [Suspect]
     Indication: INTENTIONAL SELF-INJURY
     Dosage: 30 DF ORAL
     Route: 048
     Dates: start: 20100917, end: 20100917
  3. EN (EN) [Suspect]
     Indication: INTENTIONAL SELF-INJURY
     Dosage: 20 ML ORAL
     Route: 048
     Dates: start: 20100917, end: 20100917

REACTIONS (14)
  - ALCOHOL ABUSE [None]
  - ANTICONVULSANT DRUG LEVEL INCREASED [None]
  - ASPARTATE AMINOTRANSFERASE INCREASED [None]
  - BLOOD AMYLASE INCREASED [None]
  - BLOOD CREATINE PHOSPHOKINASE INCREASED [None]
  - BLOOD PRESSURE DECREASED [None]
  - COMA [None]
  - DRUG LEVEL INCREASED [None]
  - INCORRECT DOSE ADMINISTERED [None]
  - INTENTIONAL SELF-INJURY [None]
  - METABOLIC ACIDOSIS [None]
  - OXYGEN SATURATION DECREASED [None]
  - RHABDOMYOLYSIS [None]
  - SELF-MEDICATION [None]
